FAERS Safety Report 9426814 (Version 2)
Quarter: 2014Q3

REPORT INFORMATION
  Report Type: Spontaneous
  Country: US (occurrence: US)
  Receive Date: 20130730
  Receipt Date: 20140722
  Transmission Date: 20150326
  Serious: No
  Sender: FDA-Public Use
  Company Number: US-SANOFI-AVENTIS-2012SA088765

PATIENT
  Age: 80 Year
  Sex: Female
  Weight: 54.43 kg

DRUGS (3)
  1. AMBIEN [Suspect]
     Active Substance: ZOLPIDEM TARTRATE
     Indication: INSOMNIA
     Route: 048
     Dates: start: 1988, end: 201211
  2. ZOLOFT [Concomitant]
     Active Substance: SERTRALINE HYDROCHLORIDE
     Indication: CRYING
  3. OXAZEPAM. [Suspect]
     Active Substance: OXAZEPAM

REACTIONS (18)
  - Malaise [Recovered/Resolved]
  - Vision blurred [Recovered/Resolved]
  - Gait disturbance [Recovered/Resolved]
  - Dizziness [Recovered/Resolved]
  - Fatigue [Recovered/Resolved]
  - Off label use [Unknown]
  - Back pain [Unknown]
  - Incorrect drug administration duration [Unknown]
  - Headache [Recovered/Resolved]
  - Tremor [Recovered/Resolved]
  - Depression [Unknown]
  - Eye disorder [Recovered/Resolved]
  - Somnolence [Recovered/Resolved]
  - Therapeutic response changed [Unknown]
  - Dysarthria [Recovered/Resolved]
  - Nasopharyngitis [Recovered/Resolved]
  - Mood swings [Recovered/Resolved]
  - Wrong technique in drug usage process [Unknown]
